FAERS Safety Report 9729279 (Version 3)
Quarter: 2013Q4

REPORT INFORMATION
  Report Type: Spontaneous
  Country: JP (occurrence: JP)
  Receive Date: 20131204
  Receipt Date: 20131220
  Transmission Date: 20140711
  Serious: Yes (Death)
  Sender: FDA-Public Use
  Company Number: JP-ABBVIE-13P-087-1175843-00

PATIENT
  Age: 5 Year
  Sex: Female
  Weight: 18 kg

DRUGS (6)
  1. CLARITH [Suspect]
     Indication: PRODUCT USED FOR UNKNOWN INDICATION
     Dosage: 180 MILLIGRAM, DRY SYRUP
     Route: 048
     Dates: start: 20131127
  2. MUCODYNE [Concomitant]
     Indication: PHARYNGITIS
     Route: 048
     Dates: start: 20131127
  3. TRANSAMIN [Concomitant]
     Indication: PHARYNGITIS
     Route: 048
     Dates: start: 20131127
  4. ALLELOCK [Concomitant]
     Indication: RHINITIS ALLERGIC
     Route: 048
     Dates: start: 20131127
  5. ASVERIN [Concomitant]
     Indication: BRONCHITIS
     Route: 048
     Dates: start: 20131127
  6. HOKUNALIN [Concomitant]
     Indication: BRONCHITIS
     Route: 062
     Dates: start: 20131127

REACTIONS (1)
  - Pneumonia [Fatal]
